FAERS Safety Report 8104646-9 (Version None)
Quarter: 2012Q1

REPORT INFORMATION
  Report Type: 
  Country: None (occurrence: None)
  Receive Date: 20120130
  Receipt Date: 20120126
  Transmission Date: 20120608
  Serious: Yes (Disabling, Other)
  Sender: FDA-Public Use
  Company Number: PHFR2011IE007386

PATIENT
  Sex: Female

DRUGS (9)
  1. CLOZARIL [Suspect]
     Dosage: 200 MG
     Route: 048
  2. COMBIVENT NEB [Concomitant]
     Dosage: UNK
  3. CLOZARIL [Suspect]
     Indication: SCHIZOPHRENIA
     Route: 048
     Dates: start: 20110727
  4. OLANZAPINE [Concomitant]
     Dosage: 15 MG, UNK
  5. PRILOSEC [Concomitant]
     Dosage: 30 MG, UNK
     Route: 048
  6. CALCICHEW D3 FORTE [Concomitant]
     Dosage: 70 MG, UNK
     Route: 048
  7. OXYCONTIN [Concomitant]
     Dosage: 20 MG, UNK
     Route: 048
  8. OXYCODONE HCL [Concomitant]
     Dosage: 5 MG, UNK
  9. ZOPICLONE [Concomitant]
     Dosage: 75 MG, UNK
     Route: 048

REACTIONS (4)
  - WHITE BLOOD CELL COUNT DECREASED [None]
  - HAEMOGLOBIN DECREASED [None]
  - METASTASIS [None]
  - NEUTROPHIL COUNT DECREASED [None]
